FAERS Safety Report 8871889 (Version 1)
Quarter: 2012Q4

REPORT INFORMATION
  Report Type: 
  Country: US (occurrence: US)
  Receive Date: 20121026
  Receipt Date: 20121026
  Transmission Date: 20130627
  Serious: No
  Sender: FDA-Public Use
  Company Number: US-AMGEN-USASP2012048919

PATIENT
  Age: 58 Year
  Sex: Male
  Weight: 97 kg

DRUGS (15)
  1. ENBREL [Suspect]
     Indication: PRODUCT USED FOR UNKNOWN INDICATION
     Dosage: 50 mg, qwk
     Route: 058
  2. PREDNISONE [Concomitant]
     Dosage: 10 mg, UNK
     Route: 048
  3. RAMIPRIL [Concomitant]
     Dosage: 1.25 mg, UNK
     Route: 048
  4. LIPITOR [Concomitant]
     Dosage: 20 mg, UNK
     Route: 048
  5. NIASPAN ER [Concomitant]
     Dosage: 1000 UNK, UNK
     Route: 048
  6. REGLAN                             /00041901/ [Concomitant]
     Dosage: 10 mg, UNK
     Route: 048
  7. METOPROLOL TARTRATE [Concomitant]
     Dosage: 100 mg, UNK
     Route: 048
  8. CLONAZEPAM [Concomitant]
     Dosage: 0.5 mg, UNK
     Route: 048
  9. METFORMIN [Concomitant]
     Dosage: 500 mg, UNK
     Route: 048
  10. FENOFIBRATE [Concomitant]
     Dosage: 134 mg, UNK
     Route: 048
  11. METHOCARBAMOL [Concomitant]
     Dosage: 500 mg, UNK
     Route: 048
  12. LOVAZA [Concomitant]
     Dosage: 1 g, UNK
     Route: 048
  13. VITAMIN D /00107901/ [Concomitant]
     Dosage: 50000 UNK, UNK
     Route: 048
  14. CLONIDINE [Concomitant]
     Dosage: 0.1 mg, UNK
     Route: 048
  15. GLIPIZIDE ER [Concomitant]
     Dosage: 10 mg, UNK
     Route: 048

REACTIONS (1)
  - Lower respiratory tract infection [Unknown]
